FAERS Safety Report 6644798-0 (Version None)
Quarter: 2010Q1

REPORT INFORMATION
  Report Type: 
  Country: None (occurrence: None)
  Receive Date: 20100322
  Receipt Date: 20100310
  Transmission Date: 20100710
  Serious: Yes (Other)
  Sender: FDA-Public Use
  Company Number: ES-PFIZER INC-2010030768

PATIENT
  Age: 30 Year
  Sex: Female

DRUGS (1)
  1. DIFLUCAN [Suspect]
     Indication: VULVOVAGINAL CANDIDIASIS
     Dosage: UNK, SINGLE
     Route: 048
     Dates: start: 20100223, end: 20100223

REACTIONS (1)
  - CUSHING'S SYNDROME [None]
